FAERS Safety Report 25681879 (Version 1)
Quarter: 2025Q3

REPORT INFORMATION
  Report Type: Spontaneous
  Country: US (occurrence: None)
  Receive Date: 20250813
  Receipt Date: 20250813
  Transmission Date: 20251020
  Serious: Yes (Hospitalization, Other)
  Sender: FDA-CTU
  Company Number: None

PATIENT
  Age: 33 Year
  Sex: Female

DRUGS (4)
  1. INFED [Suspect]
     Active Substance: IRON DEXTRAN
     Indication: Iron deficiency anaemia
     Route: 040
     Dates: start: 20250701, end: 20250701
  2. FERROUS SULFATE [Concomitant]
     Active Substance: FERROUS SULFATE
  3. IBUPROFEN [Concomitant]
     Active Substance: IBUPROFEN
  4. VITAMINS [Concomitant]
     Active Substance: VITAMINS

REACTIONS (11)
  - Infusion related reaction [None]
  - Abdominal pain [None]
  - Dyspnoea [None]
  - Exposure during pregnancy [None]
  - Foetal heart rate deceleration abnormality [None]
  - Caesarean section [None]
  - Hypersensitivity [None]
  - Bradycardia [None]
  - Hypoxia [None]
  - Anaphylactic reaction [None]
  - Maternal drugs affecting foetus [None]

NARRATIVE: CASE EVENT DATE: 20250701
